FAERS Safety Report 15768041 (Version 3)
Quarter: 2019Q2

REPORT INFORMATION
  Report Type: Spontaneous
  Country: BR (occurrence: BR)
  Receive Date: 20181227
  Receipt Date: 20190625
  Transmission Date: 20190711
  Serious: Yes (Death, Disabling, Other)
  Sender: FDA-Public Use
  Company Number: BR-BIOMARINAP-BR-2018-121287

PATIENT
  Age: 6 Year
  Sex: Female
  Weight: 15.6 kg

DRUGS (1)
  1. ALDURAZYME [Suspect]
     Active Substance: LARONIDASE
     Indication: MUCOPOLYSACCHARIDOSIS I
     Dosage: 0.58 MILLIGRAM/KILOGRAM, QW
     Route: 041
     Dates: start: 20160721, end: 201901

REACTIONS (10)
  - Deafness neurosensory [Unknown]
  - Condition aggravated [Unknown]
  - Sleep apnoea syndrome [Unknown]
  - Arthropathy [Unknown]
  - Musculoskeletal pain [Unknown]
  - Death [Fatal]
  - Joint range of motion decreased [Unknown]
  - Continuous positive airway pressure [Unknown]
  - Loss of personal independence in daily activities [Unknown]
  - Bilevel positive airway pressure [Unknown]

NARRATIVE: CASE EVENT DATE: 20190508
